FAERS Safety Report 22770332 (Version 11)
Quarter: 2023Q4

REPORT INFORMATION
  Report Type: Report from Study
  Country: US (occurrence: US)
  Receive Date: 20230801
  Receipt Date: 20231121
  Transmission Date: 20240109
  Serious: Yes (Other)
  Sender: FDA-Public Use
  Company Number: US-JNJFOC-20230523073

PATIENT
  Age: 62 Year
  Sex: Female
  Weight: 94.5 kg

DRUGS (20)
  1. MACITENTAN [Suspect]
     Active Substance: MACITENTAN
     Indication: Pulmonary arterial hypertension
     Route: 048
     Dates: start: 20230427
  2. MACITENTAN [Suspect]
     Active Substance: MACITENTAN
     Route: 048
  3. MACITENTAN [Suspect]
     Active Substance: MACITENTAN
     Route: 048
     Dates: start: 20230601
  4. MACITENTAN [Suspect]
     Active Substance: MACITENTAN
     Route: 048
     Dates: start: 202304
  5. SELEXIPAG [Suspect]
     Active Substance: SELEXIPAG
     Indication: Pulmonary arterial hypertension
     Route: 048
     Dates: start: 202307
  6. SELEXIPAG [Suspect]
     Active Substance: SELEXIPAG
     Indication: Pulmonary arterial hypertension
     Route: 048
  7. SELEXIPAG [Suspect]
     Active Substance: SELEXIPAG
     Dosage: 200MCG IN MORNING AND 400MCG IN EVENING
     Route: 048
     Dates: start: 20230720
  8. SELEXIPAG [Suspect]
     Active Substance: SELEXIPAG
     Route: 048
     Dates: start: 20230626
  9. SELEXIPAG [Suspect]
     Active Substance: SELEXIPAG
     Route: 048
  10. SELEXIPAG [Suspect]
     Active Substance: SELEXIPAG
     Dosage: MORNING
     Route: 048
     Dates: start: 202304
  11. SELEXIPAG [Suspect]
     Active Substance: SELEXIPAG
     Dosage: EVENING
     Route: 048
     Dates: start: 202304
  12. SELEXIPAG [Suspect]
     Active Substance: SELEXIPAG
     Route: 048
     Dates: start: 202305
  13. SELEXIPAG [Suspect]
     Active Substance: SELEXIPAG
     Dosage: 200 IN AM 400 IN PM
     Route: 048
  14. SELEXIPAG [Suspect]
     Active Substance: SELEXIPAG
     Dosage: 200 IN AM 400 IN PM
     Route: 048
  15. SELEXIPAG [Suspect]
     Active Substance: SELEXIPAG
     Dosage: 800 IN PM
     Route: 048
  16. ADEMPAS [Suspect]
     Active Substance: RIOCIGUAT
     Indication: Product used for unknown indication
     Route: 048
  17. ADEMPAS [Suspect]
     Active Substance: RIOCIGUAT
     Route: 048
  18. LASIX [Suspect]
     Active Substance: FUROSEMIDE
     Indication: Fluid retention
     Route: 048
  19. PLAVIX [Interacting]
     Active Substance: CLOPIDOGREL BISULFATE
     Indication: Product used for unknown indication
     Route: 048
  20. ELIQUIS [Concomitant]
     Active Substance: APIXABAN

REACTIONS (30)
  - Cardiac failure [Not Recovered/Not Resolved]
  - Rheumatoid arthritis [Recovered/Resolved]
  - Atrial fibrillation [Recovering/Resolving]
  - Haematochezia [Unknown]
  - Fluid retention [Recovered/Resolved]
  - Weight increased [Unknown]
  - Peripheral swelling [Unknown]
  - Pain [Recovered/Resolved]
  - Hot flush [Not Recovered/Not Resolved]
  - Dyspepsia [Unknown]
  - Headache [Recovered/Resolved]
  - Weight decreased [Unknown]
  - Oropharyngeal pain [Recovered/Resolved]
  - Lymphadenopathy [Recovered/Resolved]
  - Decreased appetite [Unknown]
  - Flushing [Recovered/Resolved]
  - Gastrooesophageal reflux disease [Not Recovered/Not Resolved]
  - Hypotension [Unknown]
  - Nausea [Recovered/Resolved]
  - Pain in jaw [Unknown]
  - Haemorrhoids [Unknown]
  - Drug intolerance [Unknown]
  - Feeling abnormal [Unknown]
  - Retching [Unknown]
  - Influenza like illness [Unknown]
  - Dehydration [Unknown]
  - Diarrhoea [Unknown]
  - Incorrect dose administered [Unknown]
  - Oxygen saturation decreased [Unknown]
  - Drug interaction [Unknown]
